FAERS Safety Report 7831041-X (Version None)
Quarter: 2011Q4

REPORT INFORMATION
  Report Type: 
  Country: None (occurrence: None)
  Receive Date: 20111021
  Receipt Date: 20111011
  Transmission Date: 20120403
  Serious: Yes (Other)
  Sender: FDA-Public Use
  Company Number: PHHY2011IT89668

PATIENT
  Age: 42 Year
  Sex: Male

DRUGS (4)
  1. VALPROIC ACID [Concomitant]
     Dosage: 200 MG, DAILY
  2. CLOZAPINE [Suspect]
     Indication: SCHIZOPHRENIA
     Dosage: 250 MG, DAILY
     Dates: start: 20050101
  3. RISPERIDONE [Concomitant]
     Dosage: 2 MG, DAILY
  4. CLOZAPINE [Suspect]
     Dosage: 350 MG, DAILY

REACTIONS (8)
  - CONGESTIVE CARDIOMYOPATHY [None]
  - PALPITATIONS [None]
  - EJECTION FRACTION DECREASED [None]
  - CARDIAC MURMUR [None]
  - DILATATION VENTRICULAR [None]
  - TACHYCARDIA [None]
  - HYPERTENSION [None]
  - DYSPNOEA [None]
